FAERS Safety Report 24564936 (Version 1)
Quarter: 2024Q4

REPORT INFORMATION
  Report Type: Spontaneous
  Country: GB (occurrence: GB)
  Receive Date: 20241030
  Receipt Date: 20241030
  Transmission Date: 20250115
  Serious: Yes (Other)
  Sender: JIANGSU HANSOH PHARMACEUTICAL
  Company Number: GB-Jiangsu Hansoh Pharmaceutical Co., Ltd-2164087

PATIENT
  Age: 54 Year
  Sex: Female

DRUGS (1)
  1. VINORELBINE TARTRATE [Suspect]
     Active Substance: VINORELBINE TARTRATE
     Dates: start: 20240829

REACTIONS (6)
  - Muscle spasms [Unknown]
  - Nausea [Recovered/Resolved]
  - Diarrhoea [Unknown]
  - Vision blurred [Unknown]
  - Angular cheilitis [Unknown]
  - Eye pain [Unknown]
